FAERS Safety Report 11166920 (Version 1)
Quarter: 2015Q2

REPORT INFORMATION
  Report Type: Spontaneous
  Country: US (occurrence: None)
  Receive Date: 20150604
  Receipt Date: 20150604
  Transmission Date: 20150821
  Serious: Yes (Hospitalization)
  Sender: FDA-Public Use
  Company Number: None

PATIENT
  Age: 53 Year
  Sex: Male
  Weight: 165.5 kg

DRUGS (8)
  1. LASIX [Concomitant]
     Active Substance: FUROSEMIDE
  2. SPIRONOLACTONE. [Concomitant]
     Active Substance: SPIRONOLACTONE
  3. OMEPRAZOLE. [Concomitant]
     Active Substance: OMEPRAZOLE
  4. CHOLESTYRAMINE. [Concomitant]
     Active Substance: CHOLESTYRAMINE
  5. PROTONIX [Concomitant]
     Active Substance: PANTOPRAZOLE SODIUM
  6. RIFAXIMIN [Concomitant]
     Active Substance: RIFAXIMIN
  7. LACTULOSE. [Concomitant]
     Active Substance: LACTULOSE
  8. HARVONI [Suspect]
     Active Substance: LEDIPASVIR\SOFOSBUVIR
     Indication: HEPATITIS C
     Route: 048
     Dates: start: 20141125, end: 20150513

REACTIONS (7)
  - Somnolence [None]
  - Confusional state [None]
  - Depression [None]
  - Abdominal pain [None]
  - Mental status changes [None]
  - Crying [None]
  - Mood altered [None]

NARRATIVE: CASE EVENT DATE: 20150125
